FAERS Safety Report 13244378 (Version 1)
Quarter: 2017Q1

REPORT INFORMATION
  Report Type: Spontaneous
  Country: US (occurrence: US)
  Receive Date: 20170217
  Receipt Date: 20170217
  Transmission Date: 20170428
  Serious: No
  Sender: FDA-Public Use
  Company Number: None

PATIENT

DRUGS (2)
  1. CARDENE [Suspect]
     Active Substance: NICARDIPINE HYDROCHLORIDE
  2. CARDENE [Suspect]
     Active Substance: NICARDIPINE HYDROCHLORIDE

REACTIONS (1)
  - Product packaging confusion [None]
